FAERS Safety Report 5639708-9 (Version None)
Quarter: 2008Q1

REPORT INFORMATION
  Report Type: 
  Country: None (occurrence: None)
  Receive Date: 20080131
  Receipt Date: 20071031
  Transmission Date: 20080703
  Serious: Yes (Hospitalization)
  Sender: FDA-Public Use
  Company Number: 163-21880-07110094

PATIENT
  Age: 84 Year
  Sex: Male

DRUGS (2)
  1. REVLIMID [Suspect]
     Indication: MULTIPLE MYELOMA
     Dosage: 15 MG, DAILY FOR THREE WEEKS, ORAL ; 15 MG, DAILY FOR THREE WEEKS, ORAL
     Route: 048
     Dates: start: 20070531, end: 20070930
  2. REVLIMID [Suspect]
     Indication: MULTIPLE MYELOMA
     Dosage: 15 MG, DAILY FOR THREE WEEKS, ORAL ; 15 MG, DAILY FOR THREE WEEKS, ORAL
     Route: 048
     Dates: start: 20071031

REACTIONS (1)
  - LOCALISED INFECTION [None]
